FAERS Safety Report 5478097-X (Version None)
Quarter: 2007Q4

REPORT INFORMATION
  Report Type: 
  Country: None (occurrence: None)
  Receive Date: 20071005
  Receipt Date: 20071003
  Transmission Date: 20080405
  Serious: Yes (Other)
  Sender: FDA-Public Use
  Company Number: US-JNJFOC-20070905270

PATIENT
  Age: 26 Year
  Sex: Female

DRUGS (6)
  1. TOPAMAX [Suspect]
  2. TOPAMAX [Suspect]
     Indication: EPILEPSY
  3. PHENOBARBITAL TAB [Suspect]
     Indication: EPILEPSY
  4. DILANTIN [Suspect]
     Indication: EPILEPSY
  5. METHYLDOPA [Suspect]
     Indication: HYPERTENSION
  6. ORAL CONTRACEPTIVE [Concomitant]
     Indication: CONTRACEPTION

REACTIONS (2)
  - ABORTION SPONTANEOUS [None]
  - DRUG EXPOSURE DURING PREGNANCY [None]
